FAERS Safety Report 25586542 (Version 1)
Quarter: 2025Q3

REPORT INFORMATION
  Report Type: Spontaneous
  Country: US (occurrence: US)
  Receive Date: 20250721
  Receipt Date: 20250721
  Transmission Date: 20251021
  Serious: No
  Sender: MYLAN
  Company Number: US-MYLANLABS-2025M1059753

PATIENT
  Sex: Female

DRUGS (4)
  1. GASTROCROM [Suspect]
     Active Substance: CROMOLYN SODIUM
     Indication: Gastrointestinal disorder
  2. GASTROCROM [Suspect]
     Active Substance: CROMOLYN SODIUM
     Route: 065
  3. GASTROCROM [Suspect]
     Active Substance: CROMOLYN SODIUM
     Route: 065
  4. GASTROCROM [Suspect]
     Active Substance: CROMOLYN SODIUM

REACTIONS (2)
  - Constipation [Unknown]
  - Drug ineffective [Unknown]
